FAERS Safety Report 4516804-0 (Version None)
Quarter: 2004Q4

REPORT INFORMATION
  Report Type: 
  Country: None (occurrence: None)
  Receive Date: 20041202
  Receipt Date: 20041122
  Transmission Date: 20050328
  Serious: Yes (Other)
  Sender: FDA-Public Use
  Company Number: US-GLAXOSMITHKLINE-A0497769B

PATIENT
  Sex: Male
  Weight: 6.7 kg

DRUGS (2)
  1. PAXIL CR [Suspect]
     Indication: PANIC DISORDER
     Dates: start: 20021001
  2. TYLENOL (CAPLET) [Concomitant]
     Indication: HEADACHE
     Dosage: 1000MG AS REQUIRED

REACTIONS (1)
  - JAUNDICE [None]
